FAERS Safety Report 6267749-X (Version None)
Quarter: 2009Q3

REPORT INFORMATION
  Report Type: 
  Country: None (occurrence: None)
  Receive Date: 20090714
  Receipt Date: 20090703
  Transmission Date: 20100115
  Serious: Yes (Hospitalization)
  Sender: FDA-Public Use
  Company Number: NO-ROCHE-629207

PATIENT
  Age: 18 Year
  Sex: Female

DRUGS (1)
  1. ROACCUTAN [Suspect]
     Indication: ACNE
     Dosage: DOSE: STANDARD FERQUENCY: DAILY DRUG NAME ALSO GIVEN AS ^ISOTRETINOIN ORIFARM^
     Route: 048
     Dates: end: 20090401

REACTIONS (1)
  - OBSESSIVE-COMPULSIVE DISORDER [None]
